FAERS Safety Report 4286938-7 (Version None)
Quarter: 2004Q1

REPORT INFORMATION
  Report Type: 
  Country: None (occurrence: None)
  Receive Date: 20040205
  Receipt Date: 20040204
  Transmission Date: 20041129
  Serious: Yes (Death)
  Sender: FDA-Public Use
  Company Number: USA-2003-0007529

PATIENT
  Age: 51 Year
  Sex: Male

DRUGS (1)
  1. OXYCODONE HCL [Suspect]

REACTIONS (1)
  - HEAD INJURY [None]
